FAERS Safety Report 8688316 (Version 2)
Quarter: 2014Q3

REPORT INFORMATION
  Report Type: Spontaneous
  Country: US (occurrence: US)
  Receive Date: 20120727
  Receipt Date: 20140723
  Transmission Date: 20150326
  Serious: Yes (Hospitalization, Other)
  Sender: FDA-Public Use
  Company Number: US-009507513-1207USA007494

PATIENT
  Sex: Female

DRUGS (1)
  1. NUVARING [Suspect]
     Active Substance: ETHINYL ESTRADIOL\ETONOGESTREL
     Indication: PRODUCT USED FOR UNKNOWN INDICATION
     Dosage: UNK
     Route: 067
     Dates: start: 200702, end: 20090517

REACTIONS (9)
  - Pleural effusion [Unknown]
  - Temporomandibular joint syndrome [Unknown]
  - Pulmonary infarction [Unknown]
  - Pulmonary embolism [Unknown]
  - Anaemia [Unknown]
  - Peripheral embolism [Unknown]
  - Drug ineffective [Unknown]
  - Lung consolidation [Unknown]
  - Hepatic mass [Unknown]

NARRATIVE: CASE EVENT DATE: 200707
